FAERS Safety Report 19652069 (Version 2)
Quarter: 2021Q3

REPORT INFORMATION
  Report Type: Report from Study
  Country: CN (occurrence: CN)
  Receive Date: 20210803
  Receipt Date: 20210826
  Transmission Date: 20211014
  Serious: Yes (Death)
  Sender: FDA-Public Use
  Company Number: CN-DECIPHERA PHARMACEUTICALS LLC-2021CN000667

PATIENT
  Age: 59 Year
  Sex: Male

DRUGS (8)
  1. NITRENDIPINE [Concomitant]
     Active Substance: NITRENDIPINE
     Indication: HYPERTENSION
     Dosage: 1 TABLET, BID
     Route: 048
     Dates: start: 2015
  2. MONTMORILLONITE [Concomitant]
     Active Substance: MONTMORILLONITE
     Indication: DIARRHOEA
     Dosage: 0.3 GRAM, TID
     Route: 048
     Dates: start: 20210603, end: 20210603
  3. BETALOC [METOPROLOL SUCCINATE] [Concomitant]
     Active Substance: METOPROLOL SUCCINATE
     Indication: HYPERTENSION
     Dosage: 1 TABLET, BID
     Route: 048
     Dates: start: 2015
  4. DCC?2618 [Suspect]
     Active Substance: RIPRETINIB
     Indication: GASTROINTESTINAL STROMAL TUMOUR
     Dosage: 150 MILLIGRAM, QD
     Route: 048
     Dates: start: 20210602, end: 20210626
  5. MONTMORILLONITE [Concomitant]
     Active Substance: MONTMORILLONITE
     Dosage: 0.3 G
     Route: 048
     Dates: start: 20210603, end: 20210603
  6. MONTMORILLONITE [Concomitant]
     Active Substance: MONTMORILLONITE
     Dosage: 3 G
     Route: 048
     Dates: start: 20210603
  7. DCC?2618 [Suspect]
     Active Substance: RIPRETINIB
     Dosage: 150 MILLIGRAM, QD
     Route: 048
     Dates: start: 20210703, end: 20210707
  8. MONTMORILLONITE [Concomitant]
     Active Substance: MONTMORILLONITE
     Dosage: 3 GRAM, TID
     Route: 048
     Dates: start: 20210603

REACTIONS (1)
  - Death [Fatal]

NARRATIVE: CASE EVENT DATE: 20210724
